FAERS Safety Report 5134309-3 (Version None)
Quarter: 2006Q4

REPORT INFORMATION
  Report Type: 
  Country: None (occurrence: None)
  Receive Date: 20060831
  Receipt Date: 20060630
  Transmission Date: 20070319
  Serious: No
  Sender: FDA-Public Use
  Company Number: 2006-BP-07559BP

PATIENT
  Age: 63 Year
  Sex: Female

DRUGS (5)
  1. SPIRIVA [Suspect]
     Indication: ASTHMA
     Dosage: 18 MCG (18 MCG,1 CAP QD),IH
     Dates: start: 20050101
  2. ALBUTEROL [Concomitant]
  3. OXYGEN (OXYGEN) [Concomitant]
  4. PERCOCET [Concomitant]
  5. DARVOCET [Concomitant]

REACTIONS (3)
  - MYALGIA [None]
  - PERIARTHRITIS [None]
  - SPUTUM DISCOLOURED [None]
